FAERS Safety Report 19463691 (Version 2)
Quarter: 2022Q2

REPORT INFORMATION
  Report Type: Report from Study
  Country: US (occurrence: US)
  Receive Date: 20210625
  Receipt Date: 20220523
  Transmission Date: 20220720
  Serious: No
  Sender: FDA-Public Use
  Company Number: US-NOVARTISTESTPH-NVSC2021US134385

PATIENT
  Sex: Male

DRUGS (2)
  1. COSENTYX [Interacting]
     Active Substance: SECUKINUMAB
     Indication: Product used for unknown indication
     Dosage: 1 DF, BIW (FOR ABOUT 3 MONTHS)
     Route: 065
  2. CELEBREX [Interacting]
     Active Substance: CELECOXIB
     Indication: Product used for unknown indication
     Dosage: UNK
     Route: 065

REACTIONS (4)
  - Stomatitis [Unknown]
  - Drug interaction [Unknown]
  - Candida infection [Unknown]
  - Inappropriate schedule of product administration [Unknown]
